FAERS Safety Report 7654723-1 (Version None)
Quarter: 2011Q3

REPORT INFORMATION
  Report Type: 
  Country: None (occurrence: None)
  Receive Date: 20110804
  Receipt Date: 20091230
  Transmission Date: 20111222
  Serious: No
  Sender: FDA-Public Use
  Company Number: 2010BI000800

PATIENT
  Sex: Female

DRUGS (1)
  1. TYSABRI [Suspect]
     Indication: MULTIPLE SCLEROSIS
     Route: 042
     Dates: start: 20091130, end: 20100225

REACTIONS (4)
  - OPTIC NEURITIS [None]
  - COGNITIVE DISORDER [None]
  - HYPERSENSITIVITY [None]
  - SENSATION OF HEAVINESS [None]
